FAERS Safety Report 19013992 (Version 3)
Quarter: 2021Q4

REPORT INFORMATION
  Report Type: Spontaneous
  Country: MT (occurrence: MT)
  Receive Date: 20210315
  Receipt Date: 20211102
  Transmission Date: 20220304
  Serious: Yes (Hospitalization, Other)
  Sender: FDA-Public Use
  Company Number: MT-SUN PHARMACEUTICAL INDUSTRIES LTD-2021R1-285780

PATIENT
  Age: 70 Year
  Sex: Male

DRUGS (2)
  1. DIGOXIN [Suspect]
     Active Substance: DIGOXIN
     Indication: Ventricular tachycardia
     Dosage: UNK
     Route: 065
  2. CARVEDILOL [Concomitant]
     Active Substance: CARVEDILOL
     Indication: Product used for unknown indication
     Dosage: UNK
     Route: 065

REACTIONS (3)
  - Toxicity to various agents [Recovered/Resolved]
  - Atrioventricular block complete [Unknown]
  - Drug level increased [Recovered/Resolved]
